FAERS Safety Report 6176209-6 (Version None)
Quarter: 2009Q2

REPORT INFORMATION
  Report Type: 
  Country: None (occurrence: None)
  Receive Date: 20090501
  Receipt Date: 20090421
  Transmission Date: 20091009
  Serious: Yes (Life-Threatening, Hospitalization, Other)
  Sender: FDA-Public Use
  Company Number: A0769568A

PATIENT
  Age: 63 Year
  Sex: Male
  Weight: 110 kg

DRUGS (5)
  1. EPZICOM [Suspect]
     Indication: HIV INFECTION
     Route: 048
     Dates: start: 20020104, end: 20090306
  2. LIPITOR [Concomitant]
     Dates: start: 20010401
  3. VIDEX EC [Concomitant]
     Indication: HIV INFECTION
     Dates: start: 20020104
  4. VIRAMUNE [Concomitant]
     Indication: HIV INFECTION
     Dates: start: 20060507
  5. UNKNOWN [Concomitant]
     Indication: HIV INFECTION
     Dates: start: 20020801

REACTIONS (9)
  - ACUTE MYOCARDIAL INFARCTION [None]
  - CARDIAC ENZYMES INCREASED [None]
  - CHEST PAIN [None]
  - CLUMSINESS [None]
  - CORONARY ARTERY OCCLUSION [None]
  - DIZZINESS [None]
  - FATIGUE [None]
  - MALAISE [None]
  - NAUSEA [None]
